FAERS Safety Report 5704121-2 (Version None)
Quarter: 2008Q2

REPORT INFORMATION
  Report Type: 
  Country: None (occurrence: None)
  Receive Date: 20080414
  Receipt Date: 20080401
  Transmission Date: 20081010
  Serious: Yes (Hospitalization, Other)
  Sender: FDA-Public Use
  Company Number: PHHY2008JP03810

PATIENT
  Age: 47 Year
  Sex: Male

DRUGS (5)
  1. DIOVAN [Suspect]
     Indication: HYPERTENSION
     Dosage: 11200 MG, UNK
     Route: 048
     Dates: end: 20080324
  2. HIRNAMIN [Concomitant]
     Route: 048
  3. AMOBAN [Concomitant]
     Route: 048
  4. NORVASC [Concomitant]
     Route: 048
  5. PAXIL [Concomitant]
     Route: 048

REACTIONS (4)
  - ANURIA [None]
  - BLOOD CREATININE INCREASED [None]
  - DEPRESSED LEVEL OF CONSCIOUSNESS [None]
  - INTENTIONAL OVERDOSE [None]
